FAERS Safety Report 13364217 (Version 1)
Quarter: 2017Q1

REPORT INFORMATION
  Report Type: Spontaneous
  Country: US (occurrence: US)
  Receive Date: 20170322
  Receipt Date: 20170322
  Transmission Date: 20170429
  Serious: Yes (Hospitalization)
  Sender: FDA-Public Use
  Company Number: None

PATIENT
  Age: 62 Year
  Sex: Male
  Weight: 73.2 kg

DRUGS (1)
  1. TEMOZOLOMIDE. [Suspect]
     Active Substance: TEMOZOLOMIDE
     Dates: end: 20160311

REACTIONS (8)
  - Anxiety [None]
  - Aphasia [None]
  - Disorientation [None]
  - Mental status changes [None]
  - Dyspnoea [None]
  - Hyperventilation [None]
  - Asthenia [None]
  - Facial paralysis [None]

NARRATIVE: CASE EVENT DATE: 20170302
